FAERS Safety Report 18592514 (Version 1)
Quarter: 2020Q4

REPORT INFORMATION
  Report Type: Spontaneous
  Country: DE (occurrence: DE)
  Receive Date: 20201209
  Receipt Date: 20201209
  Transmission Date: 20210114
  Serious: Yes (Hospitalization, Other)
  Sender: FDA-Public Use
  Company Number: DE-AMGEN-DEUSP2020194693

PATIENT
  Age: 79 Year
  Sex: Female
  Weight: 62 kg

DRUGS (4)
  1. FILGRASTIM [Suspect]
     Active Substance: FILGRASTIM
     Indication: PANCYTOPENIA
     Dosage: 300 MILLIGRAM, QD
     Route: 065
  2. METHYLPREDNISOLONE. [Concomitant]
     Active Substance: METHYLPREDNISOLONE
     Dosage: 150 MILLIGRAM (DOSE REDUCED TO 5 MG)
  3. IMIPENEM [Concomitant]
     Active Substance: IMIPENEM
     Indication: PYREXIA
     Dosage: 500 MILLIGRAM, TID
  4. VANCOMYCIN [Concomitant]
     Active Substance: VANCOMYCIN
     Indication: PYREXIA
     Dosage: 1000 MILLIGRAM, QD

REACTIONS (6)
  - Immunosuppression [Unknown]
  - Fall [Unknown]
  - Bacterial infection [Unknown]
  - Off label use [Unknown]
  - Differential white blood cell count abnormal [Unknown]
  - Skin laceration [Unknown]
